FAERS Safety Report 9208120 (Version 1)
Quarter: 2013Q2

REPORT INFORMATION
  Report Type: Spontaneous
  Country: US (occurrence: US)
  Receive Date: 20130403
  Receipt Date: 20130403
  Transmission Date: 20140414
  Serious: No
  Sender: FDA-Public Use
  Company Number: US-ASTRAZENECA-2013SE18753

PATIENT
  Age: 63 Year
  Sex: Male
  Weight: 88.5 kg

DRUGS (9)
  1. NEXIUM [Suspect]
     Indication: GASTROOESOPHAGEAL REFLUX DISEASE
     Route: 048
     Dates: start: 201209, end: 201303
  2. METOPROLOL [Suspect]
     Indication: PRODUCT USED FOR UNKNOWN INDICATION
     Route: 048
  3. FENTANYL [Concomitant]
     Indication: BACK PAIN
     Route: 061
     Dates: start: 201210
  4. OXYCODONE [Concomitant]
     Indication: BACK PAIN
     Dosage: 10/325 MG, EVERY 4 - 6 HOURS
     Route: 048
     Dates: start: 2008
  5. PLAVIX [Concomitant]
     Indication: ANTICOAGULANT THERAPY
     Route: 048
  6. ASPIRIN [Concomitant]
     Indication: ANTICOAGULANT THERAPY
     Route: 048
  7. METFORMIN [Concomitant]
     Indication: DIABETES MELLITUS
     Dosage: 500MG
     Route: 048
  8. METROPOLOL [Concomitant]
     Indication: BLOOD CHOLESTEROL INCREASED
     Route: 048
  9. DIOVAN [Concomitant]
     Indication: HYPERTENSION
     Dosage: 320/12.5 MG, DAILY
     Route: 048

REACTIONS (2)
  - Intervertebral disc protrusion [Unknown]
  - Off label use [Recovered/Resolved]
